FAERS Safety Report 12268976 (Version 2)
Quarter: 2016Q4

REPORT INFORMATION
  Report Type: Spontaneous
  Country: IT (occurrence: IT)
  Receive Date: 20160414
  Receipt Date: 20161017
  Transmission Date: 20170207
  Serious: Yes (Hospitalization, Other)
  Sender: FDA-Public Use
  Company Number: IT-BAYER-2016-067567

PATIENT
  Age: 24 Year
  Sex: Female

DRUGS (1)
  1. YASMIN [Suspect]
     Active Substance: DROSPIRENONE\ETHINYL ESTRADIOL
     Dosage: UNK
     Route: 048
     Dates: start: 200603

REACTIONS (2)
  - Adverse event [None]
  - Cerebral thrombosis [None]

NARRATIVE: CASE EVENT DATE: 200604
